FAERS Safety Report 4389028-8 (Version None)
Quarter: 2004Q3

REPORT INFORMATION
  Report Type: 
  Country: None (occurrence: None)
  Receive Date: 20040701
  Receipt Date: 20040701
  Transmission Date: 20050211
  Serious: Yes (Hospitalization, Other)
  Sender: FDA-Public Use
  Company Number: None

PATIENT
  Sex: Male
  Weight: 96.4 kg

DRUGS (4)
  1. SIMVASTATIN [Suspect]
     Indication: HYPERLIPIDAEMIA
     Dosage: 20 MG PO QPM
     Route: 048
  2. GEMFIBROZIL [Suspect]
     Indication: HYPERLIPIDAEMIA
     Dosage: 1200 QAM + 600 QPM
  3. GEMFIBROZIL [Concomitant]
  4. AZITHROMYCIN [Concomitant]

REACTIONS (3)
  - POLYMYOSITIS [None]
  - RENAL FAILURE ACUTE [None]
  - RHABDOMYOLYSIS [None]
